FAERS Safety Report 26210674 (Version 1)
Quarter: 2025Q4

REPORT INFORMATION
  Report Type: Report from Study
  Country: US (occurrence: US)
  Receive Date: 20251230
  Receipt Date: 20251230
  Transmission Date: 20260118
  Serious: Yes (Hospitalization, Other)
  Sender: Pyros Pharmaceuticals
  Company Number: US-PYROS PHARMACEUTICALS, INC-20251201627

PATIENT
  Age: 1 Year

DRUGS (1)
  1. VIGAFYDE [Suspect]
     Active Substance: VIGABATRIN
     Indication: Infantile spasms
     Dosage: 1600 MG (ADMINISTER 6 ML (600 MG), MORNING AND 10 ML (1000 MG) IN THE EVENING)
     Dates: start: 20250801

REACTIONS (5)
  - Bladder spasm [Recovered/Resolved]
  - Bladder pain [Recovered/Resolved]
  - Hydronephrosis [Recovered/Resolved]
  - Urinary retention [Recovered/Resolved]
  - Hypocitraturia [Recovered/Resolved]

NARRATIVE: CASE EVENT DATE: 20251203
